FAERS Safety Report 7623991-4 (Version None)
Quarter: 2011Q3

REPORT INFORMATION
  Report Type: 
  Country: None (occurrence: None)
  Receive Date: 20110720
  Receipt Date: 20110623
  Transmission Date: 20111222
  Serious: No
  Sender: FDA-Public Use
  Company Number: US-BRISTOL-MYERS SQUIBB COMPANY-15852767

PATIENT
  Age: 69 Year
  Sex: Male

DRUGS (7)
  1. YERVOY [Suspect]
  2. LISINOPRIL [Concomitant]
  3. LIPITOR [Concomitant]
  4. POTASSIUM [Concomitant]
  5. TOPROL-XL [Concomitant]
  6. LASIX [Concomitant]
  7. ASPIRIN [Concomitant]

REACTIONS (1)
  - VITREOUS FLOATERS [None]
